FAERS Safety Report 20707133 (Version 2)
Quarter: 2022Q2

REPORT INFORMATION
  Report Type: Report from Study
  Country: JP (occurrence: JP)
  Receive Date: 20220413
  Receipt Date: 20220413
  Transmission Date: 20220720
  Serious: Yes (Death)
  Sender: FDA-Public Use
  Company Number: JP-Merck Healthcare KGaA-9273482

PATIENT
  Age: 73 Year
  Sex: Male
  Weight: 83 kg

DRUGS (6)
  1. BAVENCIO [Suspect]
     Active Substance: AVELUMAB
     Indication: Metastatic renal cell carcinoma
     Dosage: DOSING RATE: 260 ML/HR.
     Route: 041
     Dates: start: 20210212, end: 20211217
  2. AXITINIB [Suspect]
     Active Substance: AXITINIB
     Indication: Metastatic renal cell carcinoma
     Dates: start: 20210212, end: 20210226
  3. AXITINIB [Suspect]
     Active Substance: AXITINIB
     Dates: start: 20210312, end: 20210507
  4. AXITINIB [Suspect]
     Active Substance: AXITINIB
     Dates: start: 20210508, end: 20210716
  5. ACETAMINOPHEN [Concomitant]
     Active Substance: ACETAMINOPHEN
     Indication: Premedication
     Route: 048
     Dates: start: 20210212, end: 20211217
  6. DIPHENHYDRAMINE [Concomitant]
     Active Substance: DIPHENHYDRAMINE
     Indication: Premedication
     Route: 048
     Dates: start: 20210212, end: 20211217

REACTIONS (2)
  - Pneumonitis [Fatal]
  - Blood creatinine increased [Not Recovered/Not Resolved]

NARRATIVE: CASE EVENT DATE: 20210215
